FAERS Safety Report 8823705 (Version 1)
Quarter: 2012Q4

REPORT INFORMATION
  Report Type: 
  Country: US (occurrence: US)
  Receive Date: 20121003
  Receipt Date: 20121003
  Transmission Date: 20130627
  Serious: No
  Sender: FDA-Public Use
  Company Number: US-ASTRAZENECA-2012SE74948

PATIENT
  Age: 72 Year
  Sex: Female
  Weight: 83.5 kg

DRUGS (4)
  1. PRILOSEC [Suspect]
     Indication: GASTROOESOPHAGEAL REFLUX DISEASE
     Dosage: BID
     Route: 048
     Dates: start: 2012, end: 201209
  2. NEXIUM EERD [Concomitant]
     Indication: GASTROOESOPHAGEAL REFLUX DISEASE
  3. DILTIAZEM [Concomitant]
     Indication: BLOOD PRESSURE ABNORMAL
  4. VASOTEC [Concomitant]
     Indication: BLOOD PRESSURE ABNORMAL

REACTIONS (2)
  - Off label use [Unknown]
  - Drug ineffective [Unknown]
